FAERS Safety Report 9493512 (Version 1)
Quarter: 2013Q3

REPORT INFORMATION
  Report Type: Spontaneous
  Country: US (occurrence: US)
  Receive Date: 20130902
  Receipt Date: 20130902
  Transmission Date: 20140515
  Serious: No
  Sender: FDA-Public Use
  Company Number: US-PFIZER INC-2013252362

PATIENT
  Sex: Female

DRUGS (4)
  1. LYRICA [Suspect]
     Dosage: UNK
  2. LIDOCAINE HCL [Suspect]
     Dosage: UNK
  3. NEXIUM [Suspect]
     Indication: GASTROOESOPHAGEAL REFLUX DISEASE
     Dosage: UNK
  4. TYLENOL EXTRA-STRENGTH [Suspect]
     Dosage: UNK

REACTIONS (3)
  - Rash [Unknown]
  - Swollen tongue [Unknown]
  - Urticaria [Unknown]
